FAERS Safety Report 8215831 (Version 12)
Quarter: 2013Q3

REPORT INFORMATION
  Report Type: Report from Study
  Country: US (occurrence: US)
  Receive Date: 20111031
  Receipt Date: 20130912
  Transmission Date: 20140515
  Serious: Yes (Hospitalization)
  Sender: FDA-Public Use
  Company Number: US-ELI_LILLY_AND_COMPANY-US201110004665

PATIENT
  Age: 74 Year
  Sex: Female

DRUGS (52)
  1. TERIPARATIDE [Suspect]
     Indication: OSTEOPOROSIS
     Dosage: 20 UG, QD
     Dates: start: 20110701, end: 20110926
  2. TERIPARATIDE [Suspect]
     Dosage: 20 UG, QD
     Dates: end: 20111104
  3. TERIPARATIDE [Suspect]
     Dosage: 20 UG, QD
     Dates: start: 201111
  4. TERIPARATIDE [Suspect]
     Dosage: 20 UG, QD
  5. TERIPARATIDE [Suspect]
     Dosage: 20 UG, QD
  6. TERIPARATIDE [Suspect]
     Dosage: 20 UG, QD
  7. TERIPARATIDE [Suspect]
     Dosage: 20 UG, QD
  8. TERIPARATIDE [Suspect]
     Dosage: 20 UG, QD
  9. CYMBALTA [Concomitant]
     Dosage: 60 MG, BID
  10. OXYBUTIN [Concomitant]
  11. VALTREX [Concomitant]
  12. DITROPAN [Concomitant]
  13. LYRICA [Concomitant]
     Dosage: 100 MG, TID
  14. SOMA [Concomitant]
  15. HYDROCODONE [Concomitant]
  16. TOPROL XL [Concomitant]
  17. NEXIUM [Concomitant]
  18. LEVOTHYROXINE [Concomitant]
  19. REQUIP [Concomitant]
     Indication: RESTLESS LEGS SYNDROME
  20. IRON [Concomitant]
  21. MULTIVITAMIN [Concomitant]
  22. ASPIRIN [Concomitant]
     Dosage: 81 MG, QD
  23. VITAMIN D NOS [Concomitant]
  24. CALCIUM [Concomitant]
  25. FOLIC ACID [Concomitant]
  26. PREDNISONE [Concomitant]
     Dosage: 5 MG, BID
  27. METHOTREXATE [Concomitant]
     Dosage: 5 MG, 2/W
  28. ATROVENT [Concomitant]
  29. ADVAIR [Concomitant]
  30. FENTANYL [Concomitant]
     Dosage: 25 MG, UNK
  31. FLEXERIL [Concomitant]
     Dosage: 5 MG, BID
  32. MUCINEX [Concomitant]
  33. CLARITIN [Concomitant]
  34. NIFEREX-150 FORTE [Concomitant]
  35. VITAMIN D3 [Concomitant]
  36. LOSARTAN POTASSIUM [Concomitant]
     Indication: BLOOD PRESSURE
  37. NORVASC [Concomitant]
  38. THERAGRAN [Concomitant]
  39. SYNTHROID [Concomitant]
  40. PRILOSEC [Concomitant]
  41. OS-CAL 500 + D [Concomitant]
  42. WELCHOL [Concomitant]
  43. ISOPTO HOMATROPINE [Concomitant]
  44. DUONEB [Concomitant]
     Indication: DYSPNOEA
  45. ACETAMINOPHEN [Concomitant]
  46. NORCO [Concomitant]
  47. BENZONATATE [Concomitant]
  48. VITAMIN B12 [Concomitant]
  49. METOPROLOL SUCCINATE [Concomitant]
  50. COATED ASPIRIN [Concomitant]
     Dosage: 81 MG, UNKNOWN
  51. SKELAXIN [Concomitant]
  52. MIRALAX [Concomitant]
     Indication: CONSTIPATION

REACTIONS (33)
  - Malaise [Unknown]
  - Hypophagia [Recovering/Resolving]
  - Dehydration [Unknown]
  - Mental status changes [Unknown]
  - Unresponsive to stimuli [Unknown]
  - Dry mouth [Unknown]
  - Aggression [Unknown]
  - Hypertension [Unknown]
  - Fall [Unknown]
  - Oedema peripheral [Unknown]
  - Back pain [Unknown]
  - Haemorrhage [Unknown]
  - Hiatus hernia [Not Recovered/Not Resolved]
  - Discomfort [Unknown]
  - Flatulence [Unknown]
  - Gastrointestinal disorder [Unknown]
  - Abdominal pain upper [Unknown]
  - Abdominal discomfort [Unknown]
  - Scoliosis [Unknown]
  - Cataract [Unknown]
  - Migraine [Unknown]
  - Balance disorder [Unknown]
  - Fall [Unknown]
  - Device dislocation [Unknown]
  - Constipation [Unknown]
  - Diarrhoea [Unknown]
  - Cough [Unknown]
  - Dyspnoea [Unknown]
  - Asthenia [Unknown]
  - Chest pain [Unknown]
  - Pain [Unknown]
  - Vomiting [Unknown]
  - Nausea [Unknown]
